FAERS Safety Report 19545284 (Version 7)
Quarter: 2022Q2

REPORT INFORMATION
  Report Type: Report from Study
  Country: US (occurrence: US)
  Receive Date: 20210714
  Receipt Date: 20220603
  Transmission Date: 20220720
  Serious: No
  Sender: FDA-Public Use
  Company Number: NVSC2021US149399

PATIENT
  Sex: Male

DRUGS (3)
  1. ENTRESTO [Suspect]
     Active Substance: SACUBITRIL\VALSARTAN
     Indication: Cardiac failure chronic
     Dosage: 1 DF BID (49/51MG)
     Route: 065
     Dates: start: 20210601
  2. ENTRESTO [Suspect]
     Active Substance: SACUBITRIL\VALSARTAN
     Dosage: 1 DF, BID (97/103MG)
     Route: 065
  3. FUROSEMIDE [Suspect]
     Active Substance: FUROSEMIDE
     Indication: Product used for unknown indication
     Dosage: UNK UNK, UNKNOWN
     Route: 065

REACTIONS (8)
  - Peripheral swelling [Recovered/Resolved]
  - Weight increased [Unknown]
  - Hair growth abnormal [Unknown]
  - Nail growth abnormal [Unknown]
  - Energy increased [Unknown]
  - Weight decreased [Unknown]
  - Urine output increased [Unknown]
  - Erythema [Recovered/Resolved]
